FAERS Safety Report 16086207 (Version 9)
Quarter: 2019Q4

REPORT INFORMATION
  Report Type: Report from Study
  Country: US (occurrence: US)
  Receive Date: 20190318
  Receipt Date: 20191224
  Transmission Date: 20200122
  Serious: Yes (Hospitalization, Other)
  Sender: FDA-Public Use
  Company Number: US-MALLINCKRODT-T201802263

PATIENT
  Age: 57 Year
  Sex: Female

DRUGS (12)
  1. REPOSITORY CORTICOTROPIN INJECTION [Suspect]
     Active Substance: CORTICOTROPIN
     Dosage: 40 UNITS/0.5 ML  2 TIMES PER WEEK (MONDAY/THURSDAY)
     Route: 058
     Dates: start: 201902
  2. REPOSITORY CORTICOTROPIN INJECTION [Suspect]
     Active Substance: CORTICOTROPIN
     Indication: UVEITIS
     Dosage: 40 UNITS / .5 ML EVERY DAY
     Route: 058
     Dates: start: 20180717, end: 2018
  3. REPOSITORY CORTICOTROPIN INJECTION [Suspect]
     Active Substance: CORTICOTROPIN
     Dosage: 40 UNITS/0.5 ML EVERY DAY
     Route: 058
     Dates: start: 2018, end: 2018
  4. REPOSITORY CORTICOTROPIN INJECTION [Suspect]
     Active Substance: CORTICOTROPIN
     Dosage: 40 UNITS/0.5 ML  2 TIMES PER WEEK (MONDAY/THURSDAY)
     Route: 058
  5. REPOSITORY CORTICOTROPIN INJECTION [Suspect]
     Active Substance: CORTICOTROPIN
     Dosage: 40 UNITS/ 0.5 ML, ONCE DAILY
     Route: 058
     Dates: start: 20190904
  6. METHOTREXATE. [Concomitant]
     Active Substance: METHOTREXATE
     Indication: PRODUCT USED FOR UNKNOWN INDICATION
     Dosage: UNK
     Route: 065
  7. ORENCIA [Suspect]
     Active Substance: ABATACEPT
     Indication: RHEUMATOID ARTHRITIS
     Dosage: EVERY 4 WEEKS
     Route: 065
  8. REPOSITORY CORTICOTROPIN INJECTION [Suspect]
     Active Substance: CORTICOTROPIN
     Indication: IRIDOCYCLITIS
     Dosage: 80 UNITS / 1 ML, EVERY DAY X 1 WEEK, THEN 3 TIMES A WEEK (MONDAY/WEDNESDAY/FRIDAY)
     Route: 058
     Dates: start: 20180201, end: 2018
  9. REPOSITORY CORTICOTROPIN INJECTION [Suspect]
     Active Substance: CORTICOTROPIN
     Dosage: 40 UNITS/ 0.5 ML, 3 TIMES/WEEK (MONDAY/WEDNESDAY/FRIDAY)
     Route: 058
     Dates: start: 20190909
  10. REPOSITORY CORTICOTROPIN INJECTION [Suspect]
     Active Substance: CORTICOTROPIN
     Dosage: 40 UNITS/0.5 ML EVERY OTHER DAY
     Route: 058
     Dates: start: 20181223
  11. REPOSITORY CORTICOTROPIN INJECTION [Suspect]
     Active Substance: CORTICOTROPIN
     Dosage: 40 UNITS/0.5 ML, 2 TIMES PER WEEK (MONDAY/THURSDAY)
     Route: 058
     Dates: end: 20190912
  12. REPOSITORY CORTICOTROPIN INJECTION [Suspect]
     Active Substance: CORTICOTROPIN
     Dosage: 40 UNITS/0.5 ML  2 TIMES PER WEEK (MONDAY/THURSDAY)
     Route: 058
     Dates: end: 201907

REACTIONS (26)
  - Diabetes mellitus [Recovering/Resolving]
  - Cystitis [Recovered/Resolved]
  - Eye inflammation [Not Recovered/Not Resolved]
  - Hormone level abnormal [Not Recovered/Not Resolved]
  - Depression [Recovering/Resolving]
  - Bacterial infection [Unknown]
  - Blood pressure increased [Recovering/Resolving]
  - Feeling abnormal [Not Recovered/Not Resolved]
  - Coma [Unknown]
  - Flushing [Not Recovered/Not Resolved]
  - Movement disorder [Recovering/Resolving]
  - Weight decreased [Not Recovered/Not Resolved]
  - Therapeutic product effect incomplete [Unknown]
  - Urinary tract infection [Recovering/Resolving]
  - Vulva cyst [Unknown]
  - Visual impairment [Not Recovered/Not Resolved]
  - Sensitivity to weather change [Recovering/Resolving]
  - Bronchitis [Recovering/Resolving]
  - Back pain [Not Recovered/Not Resolved]
  - Product dose omission [Recovering/Resolving]
  - West Nile viral infection [Recovering/Resolving]
  - Thyroid disorder [Unknown]
  - Fungal infection [Unknown]
  - Hepatic steatosis [Not Recovered/Not Resolved]
  - Blood cholesterol increased [Unknown]
  - Multiple use of single-use product [Recovering/Resolving]

NARRATIVE: CASE EVENT DATE: 2018
